FAERS Safety Report 6848624-6 (Version None)
Quarter: 2010Q3

REPORT INFORMATION
  Report Type: 
  Country: None (occurrence: None)
  Receive Date: 20100716
  Receipt Date: 20100708
  Transmission Date: 20110219
  Serious: Yes (Hospitalization)
  Sender: FDA-Public Use
  Company Number: GXKR2010TN07141

PATIENT
  Age: 45 Year
  Sex: Male

DRUGS (4)
  1. CICLOSPORIN (NGX) [Suspect]
     Indication: BEHCET'S SYNDROME
     Dosage: 3 MG/KG/DAY
     Route: 065
  2. CICLOSPORIN (NGX) [Suspect]
     Route: 065
  3. COLCHICINE [Concomitant]
     Indication: BEHCET'S SYNDROME
     Dosage: 1 MG/DAY
  4. ACETYLSALICYLIC ACID [Concomitant]
     Dosage: 250 MG/DAY

REACTIONS (10)
  - ACUTE VESTIBULAR SYNDROME [None]
  - BENIGN INTRACRANIAL HYPERTENSION [None]
  - CEREBELLAR SYNDROME [None]
  - DYSARTHRIA [None]
  - ENCEPHALITIS [None]
  - EXTRAPYRAMIDAL DISORDER [None]
  - FACIAL PARESIS [None]
  - GAIT DISTURBANCE [None]
  - HEADACHE [None]
  - HEMIPARESIS [None]
